FAERS Safety Report 4789567-1 (Version None)
Quarter: 2005Q4

REPORT INFORMATION
  Report Type: 
  Country: None (occurrence: None)
  Receive Date: 20051005
  Receipt Date: 20051005
  Transmission Date: 20060501
  Serious: Yes (Hospitalization)
  Sender: FDA-Public Use
  Company Number: None

PATIENT
  Age: 56 Year
  Sex: Female
  Weight: 78 kg

DRUGS (9)
  1. VINORELBINE [Suspect]
     Indication: BREAST CANCER
     Dosage: IV  X 1
     Route: 042
     Dates: start: 20050302
  2. ENALAPRIL [Concomitant]
  3. LORAZEPAM [Concomitant]
  4. AMLODIPINE [Concomitant]
  5. RANITIDINE [Concomitant]
  6. ACETAMINOPHEN [Concomitant]
  7. PROMETHAZINE [Concomitant]
  8. ONDANSETRON [Concomitant]
  9. BISACODYL [Concomitant]

REACTIONS (5)
  - CONSTIPATION [None]
  - ILEUS PARALYTIC [None]
  - NAUSEA [None]
  - THERAPY NON-RESPONDER [None]
  - VOMITING [None]
